FAERS Safety Report 21769792 (Version 1)
Quarter: 2022Q4

REPORT INFORMATION
  Report Type: Report from Study
  Country: US (occurrence: US)
  Receive Date: 20221223
  Receipt Date: 20221223
  Transmission Date: 20230113
  Serious: Yes (Hospitalization)
  Sender: FDA-Public Use
  Company Number: US-TAIHO-2022-001579

PATIENT
  Age: 75 Year
  Sex: Female

DRUGS (1)
  1. LONSURF [Suspect]
     Active Substance: TIPIRACIL HYDROCHLORIDE\TRIFLURIDINE
     Indication: Product used for unknown indication
     Dosage: DOSE AND FREQUENCY UNKNOWN. CURRENT CYCLE UNKNOWN
     Route: 048

REACTIONS (5)
  - Dehydration [Unknown]
  - Diarrhoea [Unknown]
  - Renal impairment [Unknown]
  - Hypophagia [Unknown]
  - Disease progression [Unknown]
